FAERS Safety Report 16460763 (Version 2)
Quarter: 2019Q3

REPORT INFORMATION
  Report Type: Report from Study
  Country: BR (occurrence: BR)
  Receive Date: 20190620
  Receipt Date: 20190731
  Transmission Date: 20191004
  Serious: Yes (Death)
  Sender: FDA-Public Use
  Company Number: BR-BIOGEN-2019BI00752498

PATIENT
  Age: 1 Year
  Sex: Male

DRUGS (1)
  1. SPINRAZA [Suspect]
     Active Substance: NUSINERSEN
     Indication: SPINAL MUSCULAR ATROPHY
     Dosage: RECEIVED 4TH DOSE AT 1 PER 30 DAYS
     Route: 037

REACTIONS (3)
  - Urinary retention [Fatal]
  - Constipation [Fatal]
  - Corneal reflex decreased [Fatal]

NARRATIVE: CASE EVENT DATE: 201906
